FAERS Safety Report 14306908 (Version 3)
Quarter: 2018Q1

REPORT INFORMATION
  Report Type: Report from Study
  Country: US (occurrence: US)
  Receive Date: 20171220
  Receipt Date: 20180125
  Transmission Date: 20180509
  Serious: Yes (Other)
  Sender: FDA-Public Use
  Company Number: US-AMGEN-USASL2017185555

PATIENT
  Age: 79 Year
  Sex: Male

DRUGS (1)
  1. REPATHA [Suspect]
     Active Substance: EVOLOCUMAB
     Indication: HYPERCHOLESTEROLAEMIA
     Dosage: 140 MG, Q2WK
     Route: 065
     Dates: start: 2017

REACTIONS (10)
  - Eye operation [Unknown]
  - Post procedural haemorrhage [Unknown]
  - Gastrooesophageal reflux disease [Unknown]
  - Ingrowing nail [Unknown]
  - Tooth extraction [Unknown]
  - Epistaxis [Unknown]
  - Therapeutic response unexpected [Unknown]
  - Insomnia [Unknown]
  - Constipation [Unknown]
  - Hordeolum [Unknown]

NARRATIVE: CASE EVENT DATE: 2017
